FAERS Safety Report 22252989 (Version 1)
Quarter: 2023Q2

REPORT INFORMATION
  Report Type: Spontaneous
  Country: US (occurrence: US)
  Receive Date: 20230426
  Receipt Date: 20230426
  Transmission Date: 20230722
  Serious: Yes (Other)
  Sender: FDA-Public Use
  Company Number: US-SANOFI-01584556

PATIENT
  Age: 78 Year
  Sex: Female

DRUGS (1)
  1. TOUJEO [Suspect]
     Active Substance: INSULIN GLARGINE
     Dosage: 14 UNITS
     Dates: start: 2015

REACTIONS (2)
  - Cataract [Unknown]
  - Musculoskeletal discomfort [Not Recovered/Not Resolved]
